FAERS Safety Report 6528463-6 (Version None)
Quarter: 2010Q1

REPORT INFORMATION
  Report Type: 
  Country: None (occurrence: None)
  Receive Date: 20100106
  Receipt Date: 20100104
  Transmission Date: 20100710
  Serious: Yes (Hospitalization)
  Sender: FDA-Public Use
  Company Number: B0623500A

PATIENT
  Sex: Male

DRUGS (4)
  1. AUGMENTIN '125' [Suspect]
     Dosage: 2G PER DAY
     Route: 048
     Dates: start: 20090506, end: 20090508
  2. BRONCOVALEAS [Concomitant]
  3. PRONTINAL [Concomitant]
  4. ATEM [Concomitant]

REACTIONS (2)
  - BRAIN OEDEMA [None]
  - CARDIAC FAILURE [None]
